FAERS Safety Report 15139968 (Version 2)
Quarter: 2018Q3

REPORT INFORMATION
  Report Type: Spontaneous
  Country: US (occurrence: US)
  Receive Date: 20180713
  Receipt Date: 20180928
  Transmission Date: 20181010
  Serious: Yes (Other)
  Sender: FDA-Public Use
  Company Number: US-SA-2018SA189347

PATIENT
  Age: 56 Year
  Sex: Female
  Weight: 49 kg

DRUGS (6)
  1. TAXOTERE [Suspect]
     Active Substance: DOCETAXEL
     Indication: OVARIAN CANCER
     Dosage: 75 MG. + 56.25 MG
     Route: 042
     Dates: start: 20060918, end: 20060918
  2. TAXOL [Concomitant]
     Active Substance: PACLITAXEL
  3. TAXOTERE [Suspect]
     Active Substance: DOCETAXEL
     Dosage: 75 MG. + 56.25 MG
     Route: 042
     Dates: start: 20061229, end: 20061229
  4. PARAPLATIN [Concomitant]
     Active Substance: CARBOPLATIN
  5. PROAIR HFA [Concomitant]
     Active Substance: ALBUTEROL SULFATE
     Dosage: UNK
     Dates: start: 2003
  6. SIMBRINZA [Concomitant]
     Active Substance: BRIMONIDINE TARTRATE\BRINZOLAMIDE
     Dosage: UNK
     Dates: start: 2003

REACTIONS (2)
  - Alopecia [Recovering/Resolving]
  - Psychological trauma [Unknown]

NARRATIVE: CASE EVENT DATE: 200609
